FAERS Safety Report 10154646 (Version 1)
Quarter: 2014Q2

REPORT INFORMATION
  Report Type: Spontaneous
  Country: US (occurrence: None)
  Receive Date: 20140502
  Receipt Date: 20140502
  Transmission Date: 20141212
  Serious: Yes (Hospitalization)
  Sender: FDA-Public Use
  Company Number: UTC-047796

PATIENT
  Age: 62 Year
  Sex: Female
  Weight: 94.8 kg

DRUGS (3)
  1. REMODULIN [Suspect]
     Indication: PULMONARY ARTERIAL HYPERTENSION
     Dosage: 145.44 UG/KG (0.101 UG/KG, 1 IN 1 MIN)
     Route: 058
     Dates: start: 20071012
  2. COUMADIN (WARFARIN SODIUM) (UNKNOWN) [Concomitant]
  3. REVATIO (SILDENAFIL CITRATE) (UNKNOWN) [Concomitant]

REACTIONS (2)
  - Anuria [None]
  - Dizziness [None]
